FAERS Safety Report 14700433 (Version 2)
Quarter: 2018Q2

REPORT INFORMATION
  Report Type: Spontaneous
  Country: US (occurrence: US)
  Receive Date: 20180330
  Receipt Date: 20180406
  Transmission Date: 20180711
  Serious: Yes (Hospitalization)
  Sender: FDA-Public Use
  Company Number: US-CELGENEUS-USA-20180309029

PATIENT
  Sex: Female
  Weight: 13 kg

DRUGS (24)
  1. VENETOCLAX. [Suspect]
     Active Substance: VENETOCLAX
     Dosage: 170 MILLIGRAM
     Route: 048
     Dates: start: 20171207
  2. SULFAMETHOXAZOLE [Concomitant]
     Active Substance: SULFAMETHOXAZOLE
     Indication: ANTIFUNGAL PROPHYLAXIS
     Route: 065
  3. OMEPRAZOLE. [Concomitant]
     Active Substance: OMEPRAZOLE
     Indication: GASTROOESOPHAGEAL REFLUX PROPHYLAXIS
     Dosage: 20 MILLIGRAM
     Route: 065
     Dates: start: 20171108
  4. ALLOPURINOL. [Concomitant]
     Active Substance: ALLOPURINOL
     Indication: PROPHYLAXIS
     Dosage: 300 MILLIGRAM
     Route: 065
     Dates: start: 20171113, end: 20171117
  5. OLANZAPINE. [Concomitant]
     Active Substance: OLANZAPINE
     Indication: NAUSEA
     Dosage: 2.5 MILLIGRAM
     Route: 065
     Dates: start: 20180315
  6. ALLOPURINOL. [Concomitant]
     Active Substance: ALLOPURINOL
     Dosage: 300 MILLIGRAM
     Route: 065
     Dates: start: 20180316, end: 20180321
  7. VIDAZA [Suspect]
     Active Substance: AZACITIDINE
     Indication: REFRACTORY CANCER
     Dosage: 75 MILLIGRAM/SQ. METER
     Route: 041
     Dates: start: 20180112
  8. VENETOCLAX. [Suspect]
     Active Substance: VENETOCLAX
     Indication: REFRACTORY CANCER
     Dosage: 80 MILLIGRAM
     Route: 048
     Dates: start: 20171114, end: 20171114
  9. VENETOCLAX. [Suspect]
     Active Substance: VENETOCLAX
     Dosage: 350 MILLIGRAM
     Route: 048
     Dates: start: 20171116, end: 20171206
  10. CHOLECALCIFEROL [Concomitant]
     Active Substance: CHOLECALCIFEROL
     Indication: VITAMIN SUPPLEMENTATION
     Dosage: 2000 IU (INTERNATIONAL UNIT)
     Route: 065
     Dates: start: 20171108
  11. ACYCLOVIR. [Concomitant]
     Active Substance: ACYCLOVIR
     Indication: ANTIVIRAL PROPHYLAXIS
     Dosage: 2000 MILLIGRAM
     Route: 065
     Dates: start: 20171108
  12. LORAZEPAM. [Concomitant]
     Active Substance: LORAZEPAM
     Indication: VOMITING
  13. MAGNESIUM CARBONATE [Concomitant]
     Active Substance: MAGNESIUM CARBONATE
     Indication: SUPPLEMENTATION THERAPY
     Dosage: 54 MILLIGRAM
     Route: 065
     Dates: start: 20171108
  14. VENETOCLAX. [Suspect]
     Active Substance: VENETOCLAX
     Dosage: 170 MILLIGRAM
     Route: 048
     Dates: start: 20171115, end: 20171115
  15. LORAZEPAM. [Concomitant]
     Active Substance: LORAZEPAM
     Indication: NAUSEA
     Dosage: 2.4 MILLIGRAM
     Route: 065
     Dates: start: 20171108
  16. GRANISETRON [Concomitant]
     Active Substance: GRANISETRON
     Indication: NAUSEA
     Dosage: 4 MILLIGRAM
     Route: 065
     Dates: start: 20171108
  17. ALLOPURINOL. [Concomitant]
     Active Substance: ALLOPURINOL
     Dosage: 300 MILLIGRAM
     Route: 065
     Dates: start: 20180112, end: 20180113
  18. ENALAPRIL [Concomitant]
     Active Substance: ENALAPRIL
     Indication: CARDIAC DISORDER
     Dosage: 4 MILLIGRAM
     Route: 065
     Dates: start: 20171106
  19. GRANISETRON [Concomitant]
     Active Substance: GRANISETRON
     Indication: VOMITING
  20. ALLOPURINOL. [Concomitant]
     Active Substance: ALLOPURINOL
     Dosage: 300 MILLIGRAM
     Route: 065
     Dates: start: 20171207, end: 20171208
  21. DECITABINE. [Suspect]
     Active Substance: DECITABINE
     Indication: REFRACTORY CANCER
     Dosage: 20 MILLIGRAM/SQ. METER
     Route: 041
     Dates: start: 20171207, end: 20171213
  22. LEVOFLOXACIN. [Concomitant]
     Active Substance: LEVOFLOXACIN
     Indication: ANTIBIOTIC PROPHYLAXIS
     Dosage: 440 MILLIGRAM
     Route: 065
     Dates: start: 20171121
  23. OXYCODONE [Concomitant]
     Active Substance: OXYCODONE
     Indication: PAIN
     Route: 065
     Dates: start: 20171110
  24. OLANZAPINE. [Concomitant]
     Active Substance: OLANZAPINE
     Indication: VOMITING

REACTIONS (1)
  - Febrile neutropenia [Recovered/Resolved]

NARRATIVE: CASE EVENT DATE: 20180316
